FAERS Safety Report 17274573 (Version 1)
Quarter: 2020Q1

REPORT INFORMATION
  Report Type: Spontaneous
  Country: US (occurrence: US)
  Receive Date: 20200115
  Receipt Date: 20200115
  Transmission Date: 20200409
  Serious: No
  Sender: FDA-Public Use
  Company Number: US-009507513-2001USA004654

PATIENT
  Age: 33 Month

DRUGS (8)
  1. THIOTEPA. [Concomitant]
     Active Substance: THIOTEPA
     Indication: MEDULLOBLASTOMA
  2. VINCRISTINE [Concomitant]
     Active Substance: VINCRISTINE
     Indication: MEDULLOBLASTOMA
  3. CISPLATIN. [Concomitant]
     Active Substance: CISPLATIN
     Indication: MEDULLOBLASTOMA
  4. CYCLOPHOSPHAMIDE. [Concomitant]
     Active Substance: CYCLOPHOSPHAMIDE
     Indication: MEDULLOBLASTOMA
  5. CARBOPLATIN. [Concomitant]
     Active Substance: CARBOPLATIN
     Indication: MEDULLOBLASTOMA
  6. ISOTRETINOIN. [Concomitant]
     Active Substance: ISOTRETINOIN
     Indication: MEDULLOBLASTOMA
  7. ZOLINZA [Suspect]
     Active Substance: VORINOSTAT
     Indication: MEDULLOBLASTOMA
     Dosage: UNK
     Route: 048
  8. ETOPOSIDE. [Concomitant]
     Active Substance: ETOPOSIDE
     Indication: MEDULLOBLASTOMA
     Dosage: UNK

REACTIONS (1)
  - Product use in unapproved indication [Unknown]
